FAERS Safety Report 21867199 (Version 1)
Quarter: 2023Q1

REPORT INFORMATION
  Report Type: Report from Study
  Country: US (occurrence: US)
  Receive Date: 20230116
  Receipt Date: 20230116
  Transmission Date: 20230418
  Serious: Yes (Other)
  Sender: FDA-Public Use
  Company Number: US-ABBVIE-4268544

PATIENT
  Age: 65 Year
  Sex: Male

DRUGS (1)
  1. RINVOQ [Suspect]
     Active Substance: UPADACITINIB
     Indication: Product used for unknown indication
     Route: 048

REACTIONS (8)
  - Spinal operation [Unknown]
  - Myocardial infarction [Unknown]
  - Influenza [Unknown]
  - Rheumatoid arthritis [Unknown]
  - Ear infection [Unknown]
  - Inflammatory pain [Unknown]
  - Surgery [Unknown]
  - Pharyngitis streptococcal [Unknown]

NARRATIVE: CASE EVENT DATE: 20221003
